FAERS Safety Report 19873840 (Version 1)
Quarter: 2021Q3

REPORT INFORMATION
  Report Type: Spontaneous
  Country: NL (occurrence: NL)
  Receive Date: 20210922
  Receipt Date: 20210922
  Transmission Date: 20211014
  Serious: Yes (Hospitalization, Other)
  Sender: FDA-Public Use
  Company Number: NL-MYLANLABS-08P-114-0455066-00

PATIENT
  Age: 51 Year
  Sex: Female
  Weight: 74 kg

DRUGS (8)
  1. VALPROIC ACID. [Interacting]
     Active Substance: VALPROIC ACID
     Dosage: 600 MILLIGRAM, QD
     Route: 065
  2. VALPROIC ACID. [Suspect]
     Active Substance: VALPROIC ACID
     Indication: SEIZURE
     Dosage: 600MILLIGRAMBID
  3. ATROPINE SULFATE. [Concomitant]
     Active Substance: ATROPINE SULFATE
     Indication: CHOLINERGIC SYNDROME
     Dosage: 0.25 MILLIGRAM
  4. DEXAMETHASONE. [Concomitant]
     Active Substance: DEXAMETHASONE
     Indication: PROPHYLAXIS OF NAUSEA AND VOMITING
     Dosage: 10 MILLIGRAM
  5. IRINOTECAN [Interacting]
     Active Substance: IRINOTECAN
     Indication: GALLBLADDER ADENOCARCINOMA
     Dosage: 600 MILLIGRAM
     Route: 042
  6. IRINOTECAN [Interacting]
     Active Substance: IRINOTECAN
     Dosage: 300 MILLIGRAM
     Route: 042
  7. IRINOTECAN [Interacting]
     Active Substance: IRINOTECAN
     Dosage: 600 MILLIGRAM
     Route: 042
  8. GRANISETRON [Concomitant]
     Active Substance: GRANISETRON
     Indication: PROPHYLAXIS OF NAUSEA AND VOMITING
     Dosage: 1 MILLIGRAM

REACTIONS (4)
  - Drug interaction [Unknown]
  - Neutropenia [Unknown]
  - Hepatotoxicity [Unknown]
  - Neuropathy peripheral [Unknown]
